FAERS Safety Report 9537887 (Version 1)
Quarter: 2013Q3

REPORT INFORMATION
  Report Type: Spontaneous
  Country: US (occurrence: US)
  Receive Date: 20130919
  Receipt Date: 20130919
  Transmission Date: 20140515
  Serious: No
  Sender: FDA-Public Use
  Company Number: US-BAYER-2013-109146

PATIENT
  Age: 54 Year
  Sex: Female

DRUGS (12)
  1. BAYER GENUINE ASPIRIN ORIGINAL STRENGTH [Suspect]
  2. ALEVE CAPLET [Suspect]
  3. SPIRIVA [Concomitant]
  4. ALPRAZOLAM [Concomitant]
     Indication: ANXIETY
     Dosage: 1 DF, QD
     Dates: start: 20130812
  5. PAROXETINE HYDROCHLORIDE [Concomitant]
     Indication: ANXIETY
     Dosage: 1 DF, UNK
     Route: 048
     Dates: start: 20130812
  6. CHANTIX [Concomitant]
     Dosage: 1 DF, UNK
     Route: 048
     Dates: start: 20130812
  7. SYMBICORT [Concomitant]
     Dosage: UNK UNK, BID FOR 90 DAYS
     Dates: start: 20130812
  8. ALBUTEROL SULFATE [Concomitant]
     Dosage: 1 DOSE EVERY 4 HOUR
     Dates: start: 20130812
  9. PRAVASTATIN SODIUM [Concomitant]
     Dosage: 1 DF, HS
     Route: 048
     Dates: start: 20130812
  10. VENTOLIN HFA [Concomitant]
     Indication: WHEEZING
     Dosage: 2 PUFFS EVERY 4-6 HOURS
     Dates: start: 20130812
  11. VENTOLIN HFA [Concomitant]
     Indication: DYSPNOEA
  12. CHANTIX [Concomitant]
     Dosage: 1 UNK, UNK
     Route: 048

REACTIONS (2)
  - Drug hypersensitivity [None]
  - Drug hypersensitivity [None]
